FAERS Safety Report 17046300 (Version 1)
Quarter: 2019Q4

REPORT INFORMATION
  Report Type: Spontaneous
  Country: GB (occurrence: GB)
  Receive Date: 20191119
  Receipt Date: 20191119
  Transmission Date: 20200122
  Serious: Yes (Hospitalization)
  Sender: FDA-Public Use
  Company Number: GB-TEVA-2019-GB-1138884

PATIENT
  Age: 87 Year
  Sex: Female

DRUGS (11)
  1. BISOPROLOL [Concomitant]
     Active Substance: BISOPROLOL
     Dosage: 5MG
  2. TIMOLOL. [Concomitant]
     Active Substance: TIMOLOL
     Dosage: 0.5 PERCENT
     Route: 047
  3. DORZOLAMIDE [Concomitant]
     Active Substance: DORZOLAMIDE
     Dosage: 2 PERCENT,  DORZOLAMIDE 2PERCENT , TIMOLOL 0.5PERCENT
     Route: 047
  4. WARFARIN [Suspect]
     Active Substance: WARFARIN
     Indication: ATRIAL FIBRILLATION
     Dosage: AT ADMISSION, 2 MG/ DAY
     Route: 048
     Dates: end: 20180710
  5. EPILIM [Concomitant]
     Active Substance: VALPROATE SODIUM
     Dosage: 800MG/ DAY, SANOFI
  6. GLYCERYL TRINITRATE [Concomitant]
     Active Substance: NITROGLYCERIN
     Dosage: 400MCG
     Route: 060
  7. COCODAMOL [Concomitant]
     Active Substance: ACETAMINOPHEN\CODEINE PHOSPHATE
     Dosage: 8/500MG
  8. ADCAL-D3 [Concomitant]
     Active Substance: CALCIUM CARBONATE\CHOLECALCIFEROL
     Dosage: TUTTI FRUTTI
  9. TRAVOPROST. [Concomitant]
     Active Substance: TRAVOPROST
     Dosage: 40 MICROGRAMS/ML
     Route: 047
  10. VOLTAROL [Concomitant]
     Active Substance: DICLOFENAC SODIUM
     Dosage: 1.16 PERCENT, EMULGEL (DE PHARMACEUTICALS)
  11. SIMVASTATIN. [Concomitant]
     Active Substance: SIMVASTATIN
     Dosage: 20MG

REACTIONS (2)
  - Gastritis [Unknown]
  - Haematemesis [Recovered/Resolved]

NARRATIVE: CASE EVENT DATE: 20180710
